FAERS Safety Report 22295011 (Version 1)
Quarter: 2023Q2

REPORT INFORMATION
  Report Type: Spontaneous
  Country: US (occurrence: None)
  Receive Date: 20230505
  Receipt Date: 20230505
  Transmission Date: 20230722
  Serious: Yes (Hospitalization)
  Sender: FDA-Public Use
  Company Number: None

PATIENT
  Age: 82 Year
  Sex: Female
  Weight: 95.25 kg

DRUGS (19)
  1. KISQALI [Suspect]
     Active Substance: RIBOCICLIB
     Indication: Breast cancer female
     Dosage: FREQUENCY : DAILY;?
     Route: 048
  2. ASPIRIN [Concomitant]
     Active Substance: ASPIRIN
  3. LORATADINE [Concomitant]
     Active Substance: LORATADINE
  4. ALPRAZOLAM [Concomitant]
     Active Substance: ALPRAZOLAM
  5. CALCIUM CARBONATE\VITAMIN D [Concomitant]
     Active Substance: CALCIUM CARBONATE\VITAMIN D
  6. DILTIAZEM [Concomitant]
     Active Substance: DILTIAZEM
  7. FISH OIL\OMEGA-3 FATTY ACIDS [Concomitant]
     Active Substance: FISH OIL\OMEGA-3 FATTY ACIDS
  8. FERROUS GLUCONATE [Concomitant]
     Active Substance: FERROUS GLUCONATE
  9. GLIMEPIRIDE [Concomitant]
     Active Substance: GLIMEPIRIDE
  10. LANTUS [Concomitant]
  11. LISINOPRIL [Concomitant]
     Active Substance: LISINOPRIL
  12. LOVASTATIN [Concomitant]
     Active Substance: LOVASTATIN
  13. METHIMAZOLE [Concomitant]
     Active Substance: METHIMAZOLE
  14. MYRBETRIQ [Concomitant]
     Active Substance: MIRABEGRON
  15. OMEPRAZOLE [Concomitant]
  16. OZEMPIC [Concomitant]
     Active Substance: SEMAGLUTIDE
  17. RIBOCICLIB [Concomitant]
     Active Substance: RIBOCICLIB
  18. SODIUM CHLORIDE [Concomitant]
     Active Substance: SODIUM CHLORIDE
  19. VENTOLIN [Concomitant]
     Active Substance: ALBUTEROL SULFATE

REACTIONS (3)
  - Pneumonia [None]
  - Diabetic coma [None]
  - Therapy interrupted [None]
